FAERS Safety Report 15887305 (Version 1)
Quarter: 2019Q1

REPORT INFORMATION
  Report Type: Report from Study
  Country: US (occurrence: US)
  Receive Date: 20190130
  Receipt Date: 20190130
  Transmission Date: 20190417
  Serious: Yes (Hospitalization, Other)
  Sender: FDA-Public Use
  Company Number: US-SA-2019SA016961

PATIENT
  Age: 79 Year
  Sex: Female

DRUGS (6)
  1. DRONEDARONE [Suspect]
     Active Substance: DRONEDARONE
     Indication: ATRIAL FIBRILLATION
     Dosage: 400 MG, BID
     Route: 048
  2. ENBREL [Concomitant]
     Active Substance: ETANERCEPT
     Dosage: 1 INJECTION, QW
  3. COUMADIN [Concomitant]
     Active Substance: WARFARIN SODIUM
     Dosage: UNK
  4. LANTUS [Concomitant]
     Active Substance: INSULIN GLARGINE
     Dosage: 1 DF, QD
  5. METOPROLOL. [Concomitant]
     Active Substance: METOPROLOL
  6. BYDUREON [Concomitant]
     Active Substance: EXENATIDE
     Dosage: 1 INJECTION, QW

REACTIONS (4)
  - Joint injury [Recovered/Resolved]
  - Lacrimation increased [Recovered/Resolved]
  - Cataract [Recovered/Resolved]
  - Fall [Unknown]
